FAERS Safety Report 5805825-3 (Version None)
Quarter: 2008Q3

REPORT INFORMATION
  Report Type: 
  Country: None (occurrence: None)
  Receive Date: 20080710
  Receipt Date: 20080702
  Transmission Date: 20090109
  Serious: Yes (Hospitalization)
  Sender: FDA-Public Use
  Company Number: US-ABBOTT-08P-163-0460836-00

PATIENT
  Sex: Male
  Weight: 62.198 kg

DRUGS (1)
  1. HUMIRA [Suspect]
     Indication: RHEUMATOID ARTHRITIS
     Route: 058
     Dates: start: 20050101, end: 20080501

REACTIONS (8)
  - ASTHENIA [None]
  - BLINDNESS [None]
  - CONFUSIONAL STATE [None]
  - DISORIENTATION [None]
  - HISTOPLASMOSIS [None]
  - ILL-DEFINED DISORDER [None]
  - LYMPHADENOPATHY [None]
  - SENSORY LOSS [None]
